FAERS Safety Report 4918924-5 (Version None)
Quarter: 2006Q1

REPORT INFORMATION
  Report Type: 
  Country: None (occurrence: None)
  Receive Date: 20060216
  Receipt Date: 20060203
  Transmission Date: 20060701
  Serious: Yes (Death)
  Sender: FDA-Public Use
  Company Number: 2006BI000769

PATIENT
  Age: 45 Year
  Sex: Female

DRUGS (8)
  1. AVONEX [Suspect]
     Indication: RELAPSING-REMITTING MULTIPLE SCLEROSIS
     Dosage: 30 UG;QW;IM
     Route: 030
     Dates: start: 19980616, end: 20051225
  2. BACLOFEN [Concomitant]
  3. OXYBUTYNIN [Concomitant]
  4. GABAPENTIN [Concomitant]
  5. 4-AMINOPYRIDINE POWDER [Concomitant]
  6. INFLUENZA VACCINE [Concomitant]
  7. MACROBID [Concomitant]
  8. SEPTRA [Concomitant]

REACTIONS (7)
  - ABASIA [None]
  - ASTHENIA [None]
  - CEREBROVASCULAR ACCIDENT [None]
  - HAEMATURIA [None]
  - MYOCARDIAL INFARCTION [None]
  - PULMONARY EMBOLISM [None]
  - WHEELCHAIR USER [None]
